FAERS Safety Report 12291702 (Version 1)
Quarter: 2016Q2

REPORT INFORMATION
  Report Type: Spontaneous
  Country: US (occurrence: US)
  Receive Date: 20160421
  Receipt Date: 20160421
  Transmission Date: 20160815
  Serious: Yes (Disabling)
  Sender: FDA-Public Use
  Company Number: US-DEPOMED, INC.-US-2016DEP009416

PATIENT

DRUGS (3)
  1. CAMBIA [Suspect]
     Active Substance: DICLOFENAC POTASSIUM
     Indication: MIGRAINE
     Dosage: 50 MG, UNK
     Route: 048
     Dates: start: 2007
  2. CAMBIA [Suspect]
     Active Substance: DICLOFENAC POTASSIUM
     Dosage: 50 MG, UNK
     Route: 048
     Dates: start: 201512
  3. LIDOCAINE. [Concomitant]
     Active Substance: LIDOCAINE
     Indication: INTERVERTEBRAL DISC PROTRUSION
     Dosage: UNK

REACTIONS (1)
  - Fibromyalgia [Not Recovered/Not Resolved]

NARRATIVE: CASE EVENT DATE: 2008
